FAERS Safety Report 12782555 (Version 1)
Quarter: 2016Q3

REPORT INFORMATION
  Report Type: Report from Study
  Country: US (occurrence: US)
  Receive Date: 20160927
  Receipt Date: 20160927
  Transmission Date: 20161109
  Serious: Yes (Other)
  Sender: FDA-Public Use
  Company Number: US-ROCHE-1833834

PATIENT
  Age: 69 Year
  Sex: Female
  Weight: 86 kg

DRUGS (7)
  1. BEVACIZUMAB [Suspect]
     Active Substance: BEVACIZUMAB
     Indication: ENDOMETRIAL CANCER
     Dosage: LAST TREATMENT RECEIVED ON 27/MAR/2012
     Route: 042
     Dates: start: 20111223
  2. IXABEPILONE [Suspect]
     Active Substance: IXABEPILONE
     Indication: ENDOMETRIAL CANCER
     Dosage: LAST TREATMENT RECEIVED ON 27/MAR/2012
     Route: 042
     Dates: start: 20111223
  3. CARBOPLATIN. [Suspect]
     Active Substance: CARBOPLATIN
     Indication: ENDOMETRIAL CANCER
     Dosage: LAST TREATMENT RECEIVED ON 27/MAR/2012
     Route: 042
     Dates: start: 20111223
  4. IXABEPILONE [Suspect]
     Active Substance: IXABEPILONE
     Route: 042
     Dates: start: 20120118
  5. IXABEPILONE [Suspect]
     Active Substance: IXABEPILONE
     Route: 042
     Dates: start: 20120229
  6. BEVACIZUMAB [Suspect]
     Active Substance: BEVACIZUMAB
     Dosage: LAST TREATMENT RECEIVED ON 27/MAR/2012
     Route: 042
     Dates: start: 20120118
  7. IXABEPILONE [Suspect]
     Active Substance: IXABEPILONE
     Route: 042
     Dates: start: 20120327

REACTIONS (5)
  - Embolism [Unknown]
  - White blood cell count decreased [Unknown]
  - Hypokalaemia [Unknown]
  - Anaemia [Unknown]
  - Haematuria [Unknown]
